FAERS Safety Report 12629296 (Version 3)
Quarter: 2016Q4

REPORT INFORMATION
  Report Type: Spontaneous
  Country: GB (occurrence: GB)
  Receive Date: 20160808
  Receipt Date: 20161026
  Transmission Date: 20170207
  Serious: Yes (Life-Threatening, Other)
  Sender: FDA-Public Use
  Company Number: GB-AMGEN-GBRSP2016100817

PATIENT
  Age: 55 Year
  Sex: Female

DRUGS (14)
  1. PROLIA [Suspect]
     Active Substance: DENOSUMAB
     Indication: OSTEOPOROSIS
     Dosage: 60 MG, Q6MO
     Route: 058
     Dates: start: 20120824, end: 20120904
  2. ZOMORPH [Concomitant]
     Active Substance: MORPHINE SULFATE
     Dosage: 10 MG, BID
  3. DOCUSATE [Concomitant]
     Active Substance: DOCUSATE
     Dosage: 100 MG, BID
  4. FLUOXETINE [Concomitant]
     Active Substance: FLUOXETINE HYDROCHLORIDE
     Dosage: 20 MG, QD
     Route: 048
  5. DOMPERIDONE [Concomitant]
     Active Substance: DOMPERIDONE
     Dosage: 10 MG, TID
  6. GABAPENTIN. [Concomitant]
     Active Substance: GABAPENTIN
     Dosage: 300 MG, QD
  7. LECANIDIPINE [Concomitant]
     Dosage: 20 MG, QD
     Route: 048
  8. LANSOPRAZOLE. [Concomitant]
     Active Substance: LANSOPRAZOLE
     Dosage: 30 MG, BID
     Route: 048
  9. ADCAL D3 [Concomitant]
     Active Substance: CALCIUM CARBONATE\CHOLECALCIFEROL
     Dosage: UNK UNK, BID
  10. PREDNISOLONE. [Concomitant]
     Active Substance: PREDNISOLONE
     Dosage: 5 MG, QD
     Route: 048
  11. ALFACALCIDOL [Concomitant]
     Active Substance: ALFACALCIDOL
     Dosage: 250 MUG, BID
  12. MYCOPHENOLATE MOFETIL. [Concomitant]
     Active Substance: MYCOPHENOLATE MOFETIL
     Dosage: 250 MG, BID
     Route: 048
  13. RIVAROXABAN [Concomitant]
     Active Substance: RIVAROXABAN
     Dosage: 15 MG, QD
     Route: 048
  14. CYCLIZINE [Concomitant]
     Active Substance: CYCLIZINE
     Dosage: 50 MG, TID

REACTIONS (3)
  - Haemodialysis [Not Recovered/Not Resolved]
  - Renal impairment [Unknown]
  - Dialysis [Unknown]
